FAERS Safety Report 6494210-X (Version None)
Quarter: 2009Q4

REPORT INFORMATION
  Report Type: 
  Country: None (occurrence: None)
  Receive Date: 20091214
  Receipt Date: 20090121
  Transmission Date: 20100525
  Serious: No
  Sender: FDA-Public Use
  Company Number: US-BRISTOL-MYERS SQUIBB COMPANY-14479430

PATIENT
  Age: 46 Year
  Sex: Female

DRUGS (1)
  1. ABILIFY [Suspect]
     Dosage: INITIALLY TAKEN 5MG WITH DOSAGE INCREASE TO 10MG AND DECREASED TO 4MG
     Dates: start: 20080824

REACTIONS (2)
  - PARKINSONISM [None]
  - TARDIVE DYSKINESIA [None]
